FAERS Safety Report 4353211-8 (Version None)
Quarter: 2004Q2

REPORT INFORMATION
  Report Type: 
  Country: None (occurrence: None)
  Receive Date: 20040503
  Receipt Date: 20040503
  Transmission Date: 20050107
  Serious: No
  Sender: FDA-Public Use
  Company Number: None

PATIENT
  Age: 53 Year
  Sex: Male

DRUGS (9)
  1. LISINOPRIL [Suspect]
     Indication: HYPERTENSION
     Dosage: 5 MG QD
  2. NPH INSULIN [Concomitant]
  3. METOPROLOL [Concomitant]
  4. LASIX [Concomitant]
  5. AMLODIPINE [Concomitant]
  6. CLONIDINE HCL [Concomitant]
  7. M.V.I. [Concomitant]
  8. ASPIRIN [Concomitant]
  9. ZOCOR [Concomitant]

REACTIONS (2)
  - HYPERKALAEMIA [None]
  - RENAL FAILURE CHRONIC [None]
